FAERS Safety Report 11281356 (Version 1)
Quarter: 2015Q3

REPORT INFORMATION
  Report Type: Spontaneous
  Country: KR (occurrence: KR)
  Receive Date: 20150717
  Receipt Date: 20150717
  Transmission Date: 20151125
  Serious: Yes (Other)
  Sender: FDA-Public Use
  Company Number: KR-BAYER-2015-376702

PATIENT
  Age: 72 Year
  Sex: Male

DRUGS (2)
  1. ACETYLSALICYLIC ACID (} 100 MG) [Suspect]
     Active Substance: ASPIRIN
     Indication: CEREBROVASCULAR ACCIDENT PROPHYLAXIS
     Dosage: UNK
  2. STATIN [Concomitant]
     Active Substance: UNSPECIFIED INGREDIENT
     Indication: CEREBROVASCULAR ACCIDENT PROPHYLAXIS
     Dosage: UNK

REACTIONS (1)
  - Cerebral infarction [None]
